FAERS Safety Report 8884717 (Version 2)
Quarter: 2013Q1

REPORT INFORMATION
  Report Type: Spontaneous
  Country: KR (occurrence: KR)
  Receive Date: 20121102
  Receipt Date: 20130123
  Transmission Date: 20140127
  Serious: Yes (Life-Threatening, Hospitalization)
  Sender: FDA-Public Use
  Company Number: KR-ELI_LILLY_AND_COMPANY-KR201210009930

PATIENT
  Age: 68 Year
  Sex: Male

DRUGS (15)
  1. EFFIENT [Suspect]
     Dosage: 60 MG, SINGLE
     Route: 065
  2. EFFIENT [Suspect]
     Dosage: 10 MG, UNK
     Route: 065
  3. EFFIENT [Suspect]
     Dosage: 5 MG, UNK
     Route: 065
     Dates: end: 20121024
  4. EFFIENT [Suspect]
     Dosage: 10 MG, UNK
     Route: 065
     Dates: start: 20121025
  5. DEXTROSE INFUSION FLUID 5% [Concomitant]
     Dosage: 80 ML, OTHER
     Route: 042
  6. CLEXANE [Concomitant]
     Dosage: 6000 IU, BID
     Route: 058
  7. ZANTAC [Concomitant]
     Dosage: 50 MG, TID
     Route: 042
  8. NORMAL SALINE [Concomitant]
     Dosage: 5 ML, OTHER
     Route: 042
  9. NORMAL SALINE [Concomitant]
     Dosage: UNK, TID
  10. MIDAZOLAM [Concomitant]
     Dosage: 5 MG, UNK
     Route: 042
  11. MIDAZOLAM [Concomitant]
     Dosage: UNK
  12. RHONAL [Concomitant]
  13. LIPITOR [Concomitant]
     Dosage: 40 MG, UNK
  14. TABAXIN [Concomitant]
     Dosage: 4.5 G, TID
     Route: 042
  15. LASIX [Concomitant]
     Dosage: 20 MG, UNK
     Route: 042

REACTIONS (6)
  - Cardiac arrest [Recovered/Resolved]
  - Thrombosis in device [Unknown]
  - Acute myocardial infarction [Unknown]
  - Pneumonia [Unknown]
  - Pulmonary haemorrhage [Recovered/Resolved]
  - Genetic polymorphism [Unknown]
